FAERS Safety Report 4605900-5 (Version None)
Quarter: 2005Q1

REPORT INFORMATION
  Report Type: 
  Country: None (occurrence: None)
  Receive Date: 20050303
  Receipt Date: 20041115
  Transmission Date: 20050727
  Serious: No
  Sender: FDA-Public Use
  Company Number: 200421024BWH

PATIENT
  Sex: Male

DRUGS (6)
  1. LEVITRA [Suspect]
     Dosage: 20 MG, TOTAL DAILY, ORAL
     Route: 048
  2. CARTIA (CARDIZEN) [Concomitant]
  3. ALLEGRA [Concomitant]
  4. PROTONIX [Concomitant]
  5. PRAVACHOL [Concomitant]
  6. DETROL - SLOW RELEASE [Concomitant]

REACTIONS (1)
  - DRUG INEFFECTIVE [None]
